FAERS Safety Report 5167206-8 (Version None)
Quarter: 2006Q4

REPORT INFORMATION
  Report Type: 
  Country: None (occurrence: None)
  Receive Date: 20061130
  Receipt Date: 20060202
  Transmission Date: 20070319
  Serious: Yes (Disabling)
  Sender: FDA-Public Use
  Company Number: NL-GDP-0612704

PATIENT
  Age: 28 Year
  Sex: Male

DRUGS (9)
  1. CLOBETASOL PROPIONATE [Suspect]
     Indication: ECZEMA
  2. DEXAMETHASONE [Suspect]
     Indication: ERYTHEMA OF EYELID
  3. DEXAMETHASONE [Suspect]
     Indication: EYELID OEDEMA
  4. DEXAMETHASONE [Suspect]
     Indication: EYELIDS PRURITUS
  5. GENTAMICIN [Suspect]
     Indication: ERYTHEMA OF EYELID
  6. GENTAMICIN [Suspect]
     Indication: EYELID OEDEMA
  7. GENTAMICIN [Suspect]
     Indication: EYELIDS PRURITUS
  8. BETAMETHASONE [Suspect]
     Indication: ECZEMA
  9. MOMETASONE FUROATE [Suspect]
     Indication: ECZEMA

REACTIONS (6)
  - BLEPHARITIS [None]
  - BLINDNESS [None]
  - ENDOPHTHALMITIS [None]
  - EYE INFECTION STAPHYLOCOCCAL [None]
  - GLAUCOMA [None]
  - THERAPY NON-RESPONDER [None]
